FAERS Safety Report 20235127 (Version 1)
Quarter: 2021Q4

REPORT INFORMATION
  Report Type: Spontaneous
  Country: US (occurrence: US)
  Receive Date: 20211227
  Receipt Date: 20211227
  Transmission Date: 20220303
  Serious: No
  Sender: FDA-Public Use
  Company Number: US-SUN PHARMACEUTICAL INDUSTRIES LTD-2021R1-314635

PATIENT
  Age: 43 Year
  Sex: Female
  Weight: 64.86 kg

DRUGS (1)
  1. TIAGABINE [Suspect]
     Active Substance: TIAGABINE
     Indication: Anxiety
     Dosage: 4 MILLIGRAM, 3 DOSE
     Route: 065
     Dates: start: 2015

REACTIONS (4)
  - Balance disorder [Unknown]
  - Product substitution issue [Unknown]
  - Feeling abnormal [Recovered/Resolved]
  - Malaise [Recovered/Resolved]

NARRATIVE: CASE EVENT DATE: 20160101
